FAERS Safety Report 23771400 (Version 1)
Quarter: 2024Q2

REPORT INFORMATION
  Report Type: Spontaneous
  Country: GB (occurrence: GB)
  Receive Date: 20240423
  Receipt Date: 20240423
  Transmission Date: 20240716
  Serious: Yes (Disabling, Other)
  Sender: FDA-Public Use
  Company Number: GB-SUN PHARMACEUTICAL INDUSTRIES LTD-2024RR-443330

PATIENT
  Age: 24 Year
  Sex: Male
  Weight: 89 kg

DRUGS (1)
  1. PREGABALIN [Suspect]
     Active Substance: PREGABALIN
     Indication: Product used for unknown indication
     Dosage: I TOOK UP TO A TOTAL OF 525MG A DAY (FROM MEDICAL NOTES DEC 2007), I HAVE FURTHER VIEWED MY MEDIC...
     Route: 065
     Dates: start: 20061015, end: 20071215

REACTIONS (3)
  - Medication error [Unknown]
  - Exophthalmos [Recovered/Resolved with Sequelae]
  - Mydriasis [Recovered/Resolved with Sequelae]

NARRATIVE: CASE EVENT DATE: 20061015
